FAERS Safety Report 5102909-2 (Version None)
Quarter: 2006Q3

REPORT INFORMATION
  Report Type: 
  Country: None (occurrence: None)
  Receive Date: 20060907
  Receipt Date: 20060823
  Transmission Date: 20061208
  Serious: Yes (Other)
  Sender: FDA-Public Use
  Company Number: 2006RR-03553

PATIENT
  Age: 26 Year
  Sex: Male

DRUGS (9)
  1. FLUCONAZOLE [Suspect]
     Indication: PROPHYLAXIS
     Dosage: 400 MG QD
  2. TRIMETHOPRIM [Concomitant]
  3. STAVUDINE [Concomitant]
  4. LAMIVUDINE [Concomitant]
  5. NELFINAVIR [Concomitant]
  6. DIDANOSINE [Concomitant]
  7. NEVIRAPINE [Concomitant]
  8. ZIDOVUDINE [Concomitant]
  9. LOPINAVIR/RITONAVIR [Concomitant]

REACTIONS (13)
  - BIOPSY LYMPH GLAND ABNORMAL [None]
  - BRAIN OEDEMA [None]
  - CENTRAL NERVOUS SYSTEM LESION [None]
  - CRYPTOCOCCOSIS [None]
  - CSF CELL COUNT INCREASED [None]
  - CSF GLUCOSE DECREASED [None]
  - CSF TEST ABNORMAL [None]
  - DEAFNESS UNILATERAL [None]
  - DISEASE RECURRENCE [None]
  - DRUG WITHDRAWAL SYNDROME [None]
  - IMMUNE RECONSTITUTION SYNDROME [None]
  - LYMPHADENOPATHY [None]
  - NERVOUS SYSTEM DISORDER [None]
